FAERS Safety Report 11771812 (Version 1)
Quarter: 2015Q4

REPORT INFORMATION
  Report Type: Spontaneous
  Country: US (occurrence: None)
  Receive Date: 20151123
  Receipt Date: 20151123
  Transmission Date: 20160304
  Serious: Yes (Disabling, Other)
  Sender: FDA-Public Use
  Company Number: None

PATIENT
  Age: 19 Year
  Sex: Female
  Weight: 79.38 kg

DRUGS (2)
  1. NEXPLANON [Suspect]
     Active Substance: ETONOGESTREL
  2. PEPCID [Concomitant]
     Active Substance: FAMOTIDINE

REACTIONS (7)
  - Dyspepsia [None]
  - Anxiety [None]
  - Uterine pain [None]
  - Abdominal pain upper [None]
  - Adnexa uteri pain [None]
  - Diarrhoea [None]
  - Migraine [None]
